FAERS Safety Report 6810005-9 (Version None)
Quarter: 2010Q2

REPORT INFORMATION
  Report Type: 
  Country: None (occurrence: None)
  Receive Date: 20100630
  Receipt Date: 20100624
  Transmission Date: 20101027
  Serious: Yes (Other)
  Sender: FDA-Public Use
  Company Number: A0867678A

PATIENT
  Age: 46 Year
  Sex: Female

DRUGS (1)
  1. LAMICTAL [Suspect]
     Indication: DRUG USE FOR UNKNOWN INDICATION
     Route: 048

REACTIONS (6)
  - ADVERSE DRUG REACTION [None]
  - BLINDNESS [None]
  - DECREASED IMMUNE RESPONSIVENESS [None]
  - FATIGUE [None]
  - RASH [None]
  - SYSTEMIC LUPUS ERYTHEMATOSUS [None]
